FAERS Safety Report 20294960 (Version 2)
Quarter: 2022Q1

REPORT INFORMATION
  Report Type: Report from Study
  Country: US (occurrence: US)
  Receive Date: 20220104
  Receipt Date: 20220111
  Transmission Date: 20220423
  Serious: Yes (Death)
  Sender: FDA-Public Use
  Company Number: US-BAUSCH-BL-2022-000202

PATIENT
  Age: 81 Year
  Sex: Female

DRUGS (1)
  1. XIFAXAN [Suspect]
     Active Substance: RIFAXIMIN
     Indication: Product used for unknown indication
     Dosage: IT WAS 2 YEARS AGO
     Route: 048

REACTIONS (5)
  - Hip fracture [Fatal]
  - Disease complication [Fatal]
  - Fall [Fatal]
  - Internal haemorrhage [Fatal]
  - Cardiac arrest [Fatal]
